FAERS Safety Report 17693620 (Version 4)
Quarter: 2020Q2

REPORT INFORMATION
  Report Type: Spontaneous
  Country: US (occurrence: US)
  Receive Date: 20200422
  Receipt Date: 20200626
  Transmission Date: 20200714
  Serious: No
  Sender: FDA-Public Use
  Company Number: US-GLAXOSMITHKLINE-US2020AMR066784

PATIENT
  Sex: Female

DRUGS (2)
  1. ZEJULA [Suspect]
     Active Substance: NIRAPARIB
     Dosage: 200 MG, QD
  2. ZEJULA [Suspect]
     Active Substance: NIRAPARIB
     Indication: OVARIAN CANCER
     Dosage: 300 MG, QD
     Dates: start: 20200407

REACTIONS (11)
  - Decreased appetite [Not Recovered/Not Resolved]
  - Insomnia [Unknown]
  - Dysgeusia [Unknown]
  - Fatigue [Unknown]
  - Petechiae [Unknown]
  - Malaise [Unknown]
  - Pruritus [Unknown]
  - Abdominal pain upper [Unknown]
  - Blood pressure increased [Not Recovered/Not Resolved]
  - Headache [Unknown]
  - Product dose omission [Unknown]
